FAERS Safety Report 12819774 (Version 1)
Quarter: 2016Q4

REPORT INFORMATION
  Report Type: Spontaneous
  Country: US (occurrence: US)
  Receive Date: 20161006
  Receipt Date: 20161006
  Transmission Date: 20170207
  Serious: No
  Sender: FDA-Public Use
  Company Number: None

PATIENT
  Sex: Female

DRUGS (2)
  1. CAPECITABINE. [Suspect]
     Active Substance: CAPECITABINE
     Indication: BREAST CANCER FEMALE
     Route: 048
     Dates: start: 20160406, end: 20161006
  2. CAPECITABINE. [Suspect]
     Active Substance: CAPECITABINE
     Indication: BONE NEOPLASM
     Route: 048
     Dates: start: 20160406, end: 20161006

REACTIONS (1)
  - Dysgeusia [None]
